FAERS Safety Report 8020286-4 (Version None)
Quarter: 2012Q1

REPORT INFORMATION
  Report Type: 
  Country: None (occurrence: None)
  Receive Date: 20120103
  Receipt Date: 20111229
  Transmission Date: 20120608
  Serious: Yes (Other)
  Sender: FDA-Public Use
  Company Number: US-AMGEN-KDL444466

PATIENT
  Age: 62 Year
  Sex: Female

DRUGS (1)
  1. ENBREL [Suspect]
     Indication: RHEUMATOID ARTHRITIS
     Dosage: 50 MG, QWK
     Dates: start: 20100820

REACTIONS (11)
  - CATARACT [None]
  - CYSTITIS [None]
  - PAIN [None]
  - FATIGUE [None]
  - RHEUMATOID ARTHRITIS [None]
  - OROPHARYNGEAL PAIN [None]
  - BALANCE DISORDER [None]
  - ARTHRALGIA [None]
  - BLADDER PAIN [None]
  - DRUG INEFFECTIVE [None]
  - INJECTION SITE PAIN [None]
